FAERS Safety Report 6937827-8 (Version None)
Quarter: 2010Q3

REPORT INFORMATION
  Report Type: 
  Country: None (occurrence: None)
  Receive Date: 20100824
  Receipt Date: 20100816
  Transmission Date: 20110219
  Serious: Yes (Hospitalization)
  Sender: FDA-Public Use
  Company Number: US-BIOGENIDEC-2010BI028150

PATIENT
  Age: 44 Year
  Sex: Male
  Weight: 75 kg

DRUGS (2)
  1. AVONEX [Suspect]
     Indication: MULTIPLE SCLEROSIS
     Route: 030
     Dates: start: 19961101
  2. AVONEX [Suspect]
     Route: 030

REACTIONS (5)
  - BACK DISORDER [None]
  - INCISION SITE PAIN [None]
  - INJECTION SITE ERYTHEMA [None]
  - INJECTION SITE PAIN [None]
  - INJECTION SITE WARMTH [None]
